FAERS Safety Report 7414683-5 (Version None)
Quarter: 2011Q2

REPORT INFORMATION
  Report Type: 
  Country: None (occurrence: None)
  Receive Date: 20110414
  Receipt Date: 20110218
  Transmission Date: 20111010
  Serious: Yes (Death, Other)
  Sender: FDA-Public Use
  Company Number: US-BAYER-201035479NA

PATIENT
  Sex: Male

DRUGS (6)
  1. LIDOCAINE [Concomitant]
     Dosage: UNK
     Dates: start: 19990930
  2. SODIUM BICARBONATE [Concomitant]
     Dosage: 50 MEQ, UNK
     Dates: start: 19990930
  3. REGULAR INSULIN [Concomitant]
     Dosage: UNK
     Dates: start: 19990930
  4. HEPARIN [Concomitant]
     Dosage: 5000 U, UNK
     Dates: start: 19990930
  5. TRASYLOL [Suspect]
     Indication: CORONARY ARTERY BYPASS
     Dosage: INITAL TEST DOSE: 1ML
     Dates: start: 19990930, end: 19990930
  6. LASIX [Concomitant]
     Dosage: UNK
     Dates: start: 19990930

REACTIONS (11)
  - DEATH [None]
  - EMOTIONAL DISTRESS [None]
  - RENAL IMPAIRMENT [None]
  - FEAR [None]
  - RENAL INJURY [None]
  - UNEVALUABLE EVENT [None]
  - RENAL FAILURE [None]
  - ANHEDONIA [None]
  - STRESS [None]
  - ANXIETY [None]
  - PAIN [None]
